FAERS Safety Report 14948136 (Version 9)
Quarter: 2018Q4

REPORT INFORMATION
  Report Type: Report from Study
  Country: JP (occurrence: JP)
  Receive Date: 20180529
  Receipt Date: 20181219
  Transmission Date: 20190204
  Serious: Yes (Death, Hospitalization)
  Sender: FDA-Public Use
  Company Number: JP-PFIZER INC-2018211106

PATIENT
  Age: 56 Year
  Sex: Female

DRUGS (10)
  1. BESPONSA [Suspect]
     Active Substance: INOTUZUMAB OZOGAMICIN
     Dosage: 1 MG/M2, DAILY
     Route: 041
     Dates: start: 20180718, end: 20180718
  2. BESPONSA [Suspect]
     Active Substance: INOTUZUMAB OZOGAMICIN
     Dosage: 1 MG/M2, DAILY
     Route: 041
     Dates: start: 20180711, end: 20180711
  3. BESPONSA [Suspect]
     Active Substance: INOTUZUMAB OZOGAMICIN
     Dosage: 0.5 MG/M2, DAILY
     Route: 041
     Dates: start: 20180507, end: 20180507
  4. BESPONSA [Suspect]
     Active Substance: INOTUZUMAB OZOGAMICIN
     Dosage: UNK
     Route: 041
     Dates: start: 20180822, end: 20180822
  5. BESPONSA [Suspect]
     Active Substance: INOTUZUMAB OZOGAMICIN
     Dosage: 1 MG/M2, DAILY
     Route: 041
     Dates: start: 20180921, end: 20180921
  6. BESPONSA [Suspect]
     Active Substance: INOTUZUMAB OZOGAMICIN
     Dosage: 0.6 MG/M2, DAILY
     Route: 041
     Dates: start: 20180928, end: 20180928
  7. BESPONSA [Suspect]
     Active Substance: INOTUZUMAB OZOGAMICIN
     Dosage: 0.5 MG/M2, DAILY
     Route: 041
     Dates: start: 20180513, end: 20180513
  8. BESPONSA [Suspect]
     Active Substance: INOTUZUMAB OZOGAMICIN
     Dosage: 0.6 MG/M2, DAILY
     Route: 041
     Dates: start: 20181005, end: 20181005
  9. DEXAMETHASONE. [Suspect]
     Active Substance: DEXAMETHASONE
     Dosage: UNK
  10. BESPONSA [Suspect]
     Active Substance: INOTUZUMAB OZOGAMICIN
     Dosage: UNK
     Route: 041
     Dates: start: 20180703, end: 20180703

REACTIONS (6)
  - Neoplasm progression [Fatal]
  - Hepatic function abnormal [Unknown]
  - Oedema [Unknown]
  - Weight decreased [Unknown]
  - Pneumonia [Fatal]
  - White blood cell count increased [Unknown]

NARRATIVE: CASE EVENT DATE: 20181009
